FAERS Safety Report 14756095 (Version 1)
Quarter: 2018Q2

REPORT INFORMATION
  Report Type: Report from Study
  Country: US (occurrence: US)
  Receive Date: 20180413
  Receipt Date: 20180413
  Transmission Date: 20180711
  Serious: Yes (Death)
  Sender: FDA-Public Use
  Company Number: US-TEVA-2018-US-879674

PATIENT
  Age: 83 Year
  Sex: Male

DRUGS (4)
  1. DONEPEZIL. [Suspect]
     Active Substance: DONEPEZIL
     Route: 065
  2. MEMANTINE. [Suspect]
     Active Substance: MEMANTINE
     Route: 065
  3. CARBIDOPA AND LEVODOPA [Suspect]
     Active Substance: CARBIDOPA\LEVODOPA
     Route: 065
  4. DABIGATRAN [Suspect]
     Active Substance: DABIGATRAN
     Route: 065

REACTIONS (1)
  - Toxicity to various agents [Fatal]
